FAERS Safety Report 6020256-1 (Version None)
Quarter: 2008Q4

REPORT INFORMATION
  Report Type: 
  Country: None (occurrence: None)
  Receive Date: 20081226
  Receipt Date: 20081216
  Transmission Date: 20090506
  Serious: Yes (Hospitalization, Other)
  Sender: FDA-Public Use
  Company Number: PHHY2008JP31770

PATIENT
  Age: 25 Year
  Sex: Female

DRUGS (4)
  1. CYCLOSPORINE [Suspect]
     Indication: SYSTEMIC LUPUS ERYTHEMATOSUS
     Dosage: 150 MG/DAY
     Route: 048
  2. CYCLOSPORINE [Suspect]
     Indication: LUPUS NEPHRITIS
  3. METHYLPREDNISOLONE 16MG TAB [Suspect]
     Indication: SYSTEMIC LUPUS ERYTHEMATOSUS
     Dosage: 18 MG/DAY
     Route: 048
  4. METHYLPREDNISOLONE 16MG TAB [Suspect]
     Indication: LUPUS NEPHRITIS

REACTIONS (7)
  - FALL [None]
  - LIMB INJURY [None]
  - LOCAL SWELLING [None]
  - NOCARDIOSIS [None]
  - OEDEMA [None]
  - PURULENT DISCHARGE [None]
  - WEIGHT INCREASED [None]
